FAERS Safety Report 16601502 (Version 2)
Quarter: 2019Q3

REPORT INFORMATION
  Report Type: Spontaneous
  Country: PT (occurrence: PT)
  Receive Date: 20190719
  Receipt Date: 20190725
  Transmission Date: 20191004
  Serious: Yes (Hospitalization)
  Sender: FDA-Public Use
  Company Number: PHHY2019PT162563

PATIENT
  Age: 46 Year
  Sex: Male

DRUGS (2)
  1. ADALIMUMAB [Suspect]
     Active Substance: ADALIMUMAB
     Indication: ANKYLOSING SPONDYLITIS
     Dosage: UNK
     Route: 058
  2. ADALIMUMAB [Suspect]
     Active Substance: ADALIMUMAB
     Route: 058

REACTIONS (6)
  - Cholestasis [Unknown]
  - Disseminated tuberculosis [Recovering/Resolving]
  - Empyema [Unknown]
  - Pleural effusion [Unknown]
  - Hypoxia [Unknown]
  - Acute respiratory distress syndrome [Unknown]
